FAERS Safety Report 8960081 (Version 1)
Quarter: 2012Q4

REPORT INFORMATION
  Report Type: 
  Country: US (occurrence: US)
  Receive Date: 20121211
  Receipt Date: 20121211
  Transmission Date: 20130627
  Serious: Yes (Death)
  Sender: FDA-Public Use
  Company Number: US-GLAXOSMITHKLINE-A1003918A

PATIENT
  Age: 60 Year
  Sex: Male

DRUGS (2)
  1. HYCAMTIN [Suspect]
     Indication: SMALL CELL LUNG CANCER STAGE UNSPECIFIED
     Dosage: 7.79MG Weekly
     Route: 042
     Dates: start: 20120830
  2. ALOXI [Concomitant]

REACTIONS (3)
  - Lung neoplasm malignant [Fatal]
  - Disease progression [Unknown]
  - Drug ineffective [Unknown]
